FAERS Safety Report 9287091 (Version 2)
Quarter: 2013Q4

REPORT INFORMATION
  Report Type: Spontaneous
  Country: US (occurrence: US)
  Receive Date: 20130513
  Receipt Date: 20131030
  Transmission Date: 20140711
  Serious: Yes (Hospitalization)
  Sender: FDA-Public Use
  Company Number: US-B.I. PHARMACEUTICALS,INC./RIDGEFIELD-2013-BI-13271BP

PATIENT
  Age: 65 Year
  Sex: Female
  Weight: 89.36 kg

DRUGS (10)
  1. PRADAXA [Suspect]
     Indication: ANTICOAGULANT THERAPY
     Dosage: 300 MG
     Route: 048
     Dates: start: 20110322, end: 20110707
  2. ADVAIR DISKUS [Concomitant]
     Dosage: 2 PUF
  3. ALTACE [Concomitant]
     Dosage: 10 MG
  4. AMBIEN [Concomitant]
     Dosage: 10 MG
  5. ATROVENT [Concomitant]
     Route: 055
  6. FOLIC ACID [Concomitant]
  7. VITAMIN B6 [Concomitant]
  8. VITAMIN B12 [Concomitant]
  9. LANTUS [Concomitant]
     Dosage: 50 U
  10. PREDNISONE [Concomitant]
     Dosage: 20 MG

REACTIONS (4)
  - Gastrointestinal haemorrhage [Unknown]
  - Haemorrhagic anaemia [Unknown]
  - Cellulitis [Not Recovered/Not Resolved]
  - Skin ulcer [Not Recovered/Not Resolved]
